FAERS Safety Report 8822396 (Version 1)
Quarter: 2012Q4

REPORT INFORMATION
  Report Type: 
  Country: BR (occurrence: BR)
  Receive Date: 20121003
  Receipt Date: 20121003
  Transmission Date: 20130627
  Serious: Yes (Hospitalization, Other)
  Sender: FDA-Public Use
  Company Number: BR-AMGEN-BRASP2012053638

PATIENT
  Age: 48 Year
  Sex: Male
  Weight: 68 kg

DRUGS (7)
  1. ENBREL [Suspect]
     Indication: RHEUMATOID ARTHRITIS
     Dosage: 50 mg, 1x/week
     Route: 058
     Dates: start: 20120817
  2. RIVOTRIL [Concomitant]
     Indication: DEPRESSION
     Dosage: 100 mg, 1x/day
  3. RIVOTRIL [Concomitant]
     Indication: ANXIETY
     Dosage: UNK
  4. DONAREN [Concomitant]
     Indication: DEPRESSION
     Dosage: 100 mg, 1x/day
  5. DONAREN [Concomitant]
     Indication: ANXIETY
     Dosage: UNK
  6. CAPTOPRIL [Concomitant]
     Indication: HYPERTENSION
     Dosage: 2 mg, 2x/day
  7. PRELONE                            /00016201/ [Concomitant]
     Dosage: UNK

REACTIONS (4)
  - Pain [Not Recovered/Not Resolved]
  - Diabetes mellitus [Unknown]
  - Weight decreased [Unknown]
  - Bacterial infection [Unknown]
